FAERS Safety Report 7289228-3 (Version None)
Quarter: 2011Q1

REPORT INFORMATION
  Report Type: 
  Country: None (occurrence: None)
  Receive Date: 20110211
  Receipt Date: 20110202
  Transmission Date: 20110831
  Serious: Yes (Other)
  Sender: FDA-Public Use
  Company Number: PHHO2011GR01504

PATIENT
  Sex: Female
  Weight: 37 kg

DRUGS (11)
  1. BLINDED ACZ885 [Suspect]
     Indication: JUVENILE ARTHRITIS
     Dosage: CODE NOT BROKEN
     Route: 058
     Dates: start: 20101214, end: 20101214
  2. BLINDED PLACEBO [Suspect]
     Dosage: CODE NOT BROKEN
     Route: 058
     Dates: start: 20110111, end: 20110111
  3. ACZ885 [Suspect]
     Indication: JUVENILE ARTHRITIS
     Dosage: 150 MG, QW4
     Route: 058
     Dates: start: 20101116, end: 20101214
  4. BLINDED ACZ885 [Suspect]
     Dosage: CODE NOT BROKEN
     Route: 058
     Dates: start: 20110208, end: 20110208
  5. BLINDED PLACEBO [Suspect]
     Dosage: CODE NOT BROKEN
     Route: 058
     Dates: start: 20110208, end: 20110208
  6. BLINDED ACZ885 [Suspect]
     Dosage: CODE NOT BROKEN
     Route: 058
     Dates: start: 20110111, end: 20110111
  7. BLINDED NO TREATMENT RECEIVED [Suspect]
     Dosage: CODE NOT BROKEN
     Route: 058
     Dates: start: 20110208, end: 20110208
  8. BLINDED PLACEBO [Suspect]
     Indication: JUVENILE ARTHRITIS
     Dosage: CODE NOT BROKEN
     Route: 058
     Dates: start: 20101214, end: 20101214
  9. METHOTREXATE [Suspect]
     Indication: JUVENILE ARTHRITIS
     Dosage: UNK
     Dates: start: 20060104, end: 20110121
  10. BLINDED NO TREATMENT RECEIVED [Suspect]
     Indication: JUVENILE ARTHRITIS
     Dosage: CODE NOT BROKEN
     Route: 058
     Dates: start: 20101214, end: 20101214
  11. BLINDED NO TREATMENT RECEIVED [Suspect]
     Dosage: CODE NOT BROKEN
     Route: 058
     Dates: start: 20110111, end: 20110111

REACTIONS (5)
  - HEPATOTOXICITY [None]
  - UPPER RESPIRATORY TRACT INFECTION [None]
  - COUGH [None]
  - HYPERTRANSAMINASAEMIA [None]
  - PHARYNGITIS [None]
